FAERS Safety Report 5790076-1 (Version None)
Quarter: 2008Q2

REPORT INFORMATION
  Report Type: 
  Country: None (occurrence: None)
  Receive Date: 20080626
  Receipt Date: 20080417
  Transmission Date: 20081010
  Serious: No
  Sender: FDA-Public Use
  Company Number: A0670936A

PATIENT
  Age: 50 Year
  Weight: 75.9 kg

DRUGS (1)
  1. ALLI [Suspect]
     Route: 048

REACTIONS (27)
  - ANOREXIA [None]
  - ANXIETY [None]
  - ASTHENIA [None]
  - BINGE EATING [None]
  - CHILLS [None]
  - DRUG INEFFECTIVE [None]
  - DYSPNOEA [None]
  - DYSURIA [None]
  - FATIGUE [None]
  - FEELING COLD [None]
  - FOOD CRAVING [None]
  - GASTROINTESTINAL DISORDER [None]
  - GASTROINTESTINAL PAIN [None]
  - INCREASED APPETITE [None]
  - INFLUENZA [None]
  - INITIAL INSOMNIA [None]
  - INSOMNIA [None]
  - LUNG DISORDER [None]
  - MENTAL DISORDER [None]
  - NASOPHARYNGITIS [None]
  - PAIN [None]
  - PHARYNGOLARYNGEAL PAIN [None]
  - SINUS CONGESTION [None]
  - THERAPEUTIC RESPONSE UNEXPECTED [None]
  - TOOTHACHE [None]
  - URINARY TRACT INFECTION [None]
  - WEIGHT INCREASED [None]
